FAERS Safety Report 4948793-9 (Version None)
Quarter: 2006Q1

REPORT INFORMATION
  Report Type: 
  Country: None (occurrence: None)
  Receive Date: 20060315
  Receipt Date: 20060308
  Transmission Date: 20060701
  Serious: Yes (Hospitalization, Other)
  Sender: FDA-Public Use
  Company Number: HQWYE138826MAR04

PATIENT
  Age: 73 Year
  Sex: Female
  Weight: 60.9 kg

DRUGS (4)
  1. MYLOTARG [Suspect]
     Indication: ACUTE MYELOID LEUKAEMIA
     Dosage: 10 MG 1X PER 1 DAY, INTRAVENOUS
     Route: 042
     Dates: start: 20040130, end: 20040130
  2. MYLOTARG [Suspect]
     Indication: ACUTE MYELOID LEUKAEMIA
     Dosage: 10 MG 1X PER 1 DAY, INTRAVENOUS
     Route: 042
     Dates: start: 20040206, end: 20040206
  3. CYTARABINE [Concomitant]
  4. ALLOPURINOL [Concomitant]

REACTIONS (13)
  - CHEST PAIN [None]
  - DEEP VEIN THROMBOSIS [None]
  - DYSPNOEA [None]
  - FEBRILE NEUTROPENIA [None]
  - HAEMOTHORAX [None]
  - HYPOXIA [None]
  - INFUSION RELATED REACTION [None]
  - LUNG INFECTION [None]
  - PANCYTOPENIA [None]
  - PLEURAL EFFUSION [None]
  - POST PROCEDURAL HAEMORRHAGE [None]
  - PULMONARY OEDEMA [None]
  - STAPHYLOCOCCAL BACTERAEMIA [None]
